FAERS Safety Report 22245377 (Version 1)
Quarter: 2023Q2

REPORT INFORMATION
  Report Type: Report from Study
  Country: US (occurrence: US)
  Receive Date: 20230424
  Receipt Date: 20230424
  Transmission Date: 20230721
  Serious: Yes (Other)
  Sender: FDA-Public Use
  Company Number: US-002147023-NVSC2023US089217

PATIENT
  Sex: Male

DRUGS (1)
  1. DOCETAXEL [Suspect]
     Active Substance: DOCETAXEL
     Indication: Prostate cancer
     Dosage: UNK, OTHER (6 CYCLES)
     Route: 065
     Dates: start: 201910, end: 202202

REACTIONS (2)
  - Febrile neutropenia [Unknown]
  - Decreased appetite [Unknown]
